FAERS Safety Report 17576281 (Version 1)
Quarter: 2020Q1

REPORT INFORMATION
  Report Type: Spontaneous
  Country: CN (occurrence: CN)
  Receive Date: 20200324
  Receipt Date: 20200324
  Transmission Date: 20200409
  Serious: Yes (Other)
  Sender: FDA-Public Use
  Company Number: CN-ROCHE-2566326

PATIENT
  Age: 38 Year
  Sex: Female

DRUGS (41)
  1. AVASTIN [Suspect]
     Active Substance: BEVACIZUMAB
     Route: 065
     Dates: start: 20170409
  2. AVASTIN [Suspect]
     Active Substance: BEVACIZUMAB
     Route: 065
     Dates: start: 20170502
  3. OXALIPLATIN. [Suspect]
     Active Substance: OXALIPLATIN
     Indication: ADENOCARCINOMA
     Dosage: XELOX REGIMEN
     Route: 041
     Dates: start: 20170116
  4. OXALIPLATIN. [Suspect]
     Active Substance: OXALIPLATIN
     Dosage: XELOX REGIMEN
     Route: 041
     Dates: start: 20170409
  5. 5-FLUOROURACIL [FLUOROURACIL] [Suspect]
     Active Substance: FLUOROURACIL
     Indication: COLON CANCER
     Dosage: FOLFIRI REGIMEN
     Route: 065
     Dates: start: 20170725
  6. XELODA [Suspect]
     Active Substance: CAPECITABINE
     Indication: COLON CANCER
     Dosage: XELOX REGIMEN 8 TIMES
     Route: 048
     Dates: start: 20140109, end: 20140612
  7. CALCIUM FOLINATE [Suspect]
     Active Substance: LEUCOVORIN CALCIUM
     Indication: COLON CANCER
     Dosage: FOLFIRI REGIMEN
     Route: 065
     Dates: start: 20170725
  8. IRINOTECAN [Suspect]
     Active Substance: IRINOTECAN
     Dosage: FOLFIRI REGIMEN
     Route: 065
     Dates: start: 20171008
  9. AVASTIN [Suspect]
     Active Substance: BEVACIZUMAB
     Indication: COLON CANCER
     Route: 065
     Dates: start: 20170116
  10. AVASTIN [Suspect]
     Active Substance: BEVACIZUMAB
     Route: 065
     Dates: start: 20170226
  11. AVASTIN [Suspect]
     Active Substance: BEVACIZUMAB
     Route: 065
     Dates: start: 20170319
  12. AVASTIN [Suspect]
     Active Substance: BEVACIZUMAB
     Route: 065
     Dates: start: 20170827
  13. OXALIPLATIN. [Suspect]
     Active Substance: OXALIPLATIN
     Dosage: XELOX REGIMEN
     Route: 041
     Dates: start: 20170206
  14. 5-FLUOROURACIL [FLUOROURACIL] [Suspect]
     Active Substance: FLUOROURACIL
     Indication: ADENOCARCINOMA
     Dosage: FOLFIRI REGIMEN
     Route: 065
     Dates: start: 20170827
  15. IRINOTECAN [Suspect]
     Active Substance: IRINOTECAN
     Indication: COLON CANCER
     Dosage: FOLFIRI REGIMEN
     Route: 065
     Dates: start: 20170725
  16. XELODA [Suspect]
     Active Substance: CAPECITABINE
     Dosage: XELOX REGIMEN
     Route: 048
     Dates: start: 20170206
  17. XELODA [Suspect]
     Active Substance: CAPECITABINE
     Dosage: XELOX REGIMEN
     Route: 048
     Dates: start: 20170319
  18. AVASTIN [Suspect]
     Active Substance: BEVACIZUMAB
     Indication: ADENOCARCINOMA
     Route: 065
     Dates: start: 20170206
  19. AVASTIN [Suspect]
     Active Substance: BEVACIZUMAB
     Route: 065
     Dates: start: 20171008
  20. AVASTIN [Suspect]
     Active Substance: BEVACIZUMAB
     Route: 065
     Dates: start: 20180118
  21. 5-FLUOROURACIL [FLUOROURACIL] [Suspect]
     Active Substance: FLUOROURACIL
     Dosage: FOLFIRI REGIMEN
     Route: 065
     Dates: start: 20171008
  22. CALCIUM FOLINATE [Suspect]
     Active Substance: LEUCOVORIN CALCIUM
     Dosage: FOLFIRI REGIMEN
     Route: 065
     Dates: start: 20171008
  23. IRINOTECAN [Suspect]
     Active Substance: IRINOTECAN
     Indication: ADENOCARCINOMA
     Dosage: FOLFIRI REGIMEN
     Route: 065
     Dates: start: 20170827
  24. TEGAFUR,GIMERACIL AND OTERACIL POTASSIUM [Concomitant]
     Active Substance: GIMERACIL\OTERACIL\TEGAFUR
     Indication: ADENOCARCINOMA
     Route: 065
     Dates: start: 20180222
  25. XELODA [Suspect]
     Active Substance: CAPECITABINE
     Dosage: XELOX REGIMEN
     Route: 048
     Dates: start: 20170409
  26. AVASTIN [Suspect]
     Active Substance: BEVACIZUMAB
     Route: 065
     Dates: start: 20170604
  27. OXALIPLATIN. [Suspect]
     Active Substance: OXALIPLATIN
     Dosage: XELOX REGIMEN
     Route: 041
     Dates: start: 20170502
  28. TEGAFUR,GIMERACIL AND OTERACIL POTASSIUM [Concomitant]
     Active Substance: GIMERACIL\OTERACIL\TEGAFUR
     Route: 065
     Dates: start: 20180520
  29. XELODA [Suspect]
     Active Substance: CAPECITABINE
     Indication: ADENOCARCINOMA
     Dosage: XELOX REGIMEN
     Route: 048
     Dates: start: 20170116
  30. XELODA [Suspect]
     Active Substance: CAPECITABINE
     Dosage: XELOX REGIMEN
     Route: 048
     Dates: start: 20170502
  31. OXALIPLATIN. [Suspect]
     Active Substance: OXALIPLATIN
     Dosage: XELOX REGIMEN
     Route: 041
     Dates: start: 20170319
  32. CALCIUM FOLINATE [Suspect]
     Active Substance: LEUCOVORIN CALCIUM
     Indication: ADENOCARCINOMA
     Dosage: FOLFIRI REGIMEN
     Route: 065
     Dates: start: 20170827
  33. XELODA [Suspect]
     Active Substance: CAPECITABINE
     Dosage: XELOX REGIMEN
     Route: 048
     Dates: start: 20170604
  34. OXALIPLATIN. [Suspect]
     Active Substance: OXALIPLATIN
     Dosage: XELOX REGIMEN
     Route: 040
     Dates: start: 20170604
  35. TEGAFUR,GIMERACIL AND OTERACIL POTASSIUM [Concomitant]
     Active Substance: GIMERACIL\OTERACIL\TEGAFUR
     Indication: COLON CANCER
     Route: 065
     Dates: start: 20180118
  36. XELODA [Suspect]
     Active Substance: CAPECITABINE
     Dosage: XELOX REGIMEN
     Route: 048
     Dates: start: 20170226
  37. AVASTIN [Suspect]
     Active Substance: BEVACIZUMAB
     Route: 065
     Dates: start: 20170725
  38. OXALIPLATIN. [Suspect]
     Active Substance: OXALIPLATIN
     Indication: COLON CANCER
     Dosage: XELOX REGIMEN 8 TIMES
     Route: 041
     Dates: start: 20140109, end: 20140612
  39. OXALIPLATIN. [Suspect]
     Active Substance: OXALIPLATIN
     Dosage: XELOX REGIMEN
     Route: 041
     Dates: start: 20170226
  40. TEGAFUR,GIMERACIL AND OTERACIL POTASSIUM [Concomitant]
     Active Substance: GIMERACIL\OTERACIL\TEGAFUR
     Route: 065
     Dates: start: 20180320
  41. TEGAFUR,GIMERACIL AND OTERACIL POTASSIUM [Concomitant]
     Active Substance: GIMERACIL\OTERACIL\TEGAFUR
     Route: 065
     Dates: start: 20180422

REACTIONS (14)
  - Hepatic cirrhosis [Unknown]
  - Portal hypertension [Unknown]
  - Alopecia [Unknown]
  - Ascites [Unknown]
  - Platelet count decreased [Unknown]
  - Abdominal pain [Unknown]
  - Chills [Unknown]
  - Pneumonia [Unknown]
  - Splenomegaly [Unknown]
  - Pyrexia [Unknown]
  - Collateral circulation [Unknown]
  - Splenic infarction [Unknown]
  - Diarrhoea [Unknown]
  - Atelectasis [Unknown]

NARRATIVE: CASE EVENT DATE: 2017
